APPROVED DRUG PRODUCT: FUROSEMIDE
Active Ingredient: FUROSEMIDE
Strength: 40MG
Dosage Form/Route: TABLET;ORAL
Application: A070413 | Product #001
Applicant: ANI PHARMACEUTICALS INC
Approved: Feb 26, 1986 | RLD: No | RS: No | Type: DISCN